FAERS Safety Report 18168766 (Version 1)
Quarter: 2020Q3

REPORT INFORMATION
  Report Type: Other
  Country: FR (occurrence: FR)
  Receive Date: 20200819
  Receipt Date: 20200819
  Transmission Date: 20201103
  Serious: Yes (Life-Threatening)
  Sender: FDA-Public Use
  Company Number: FR-CADILA HEALTHCARE LIMITED-FR-ZYDUS-049631

PATIENT

DRUGS (4)
  1. LORMETAZEPAM [Suspect]
     Active Substance: LORMETAZEPAM
     Indication: POISONING DELIBERATE
     Dosage: 84 MILLIGRAM, SINGLE
     Route: 048
     Dates: start: 20200219, end: 20200219
  2. ESTIMA [PROGESTERONE] [Suspect]
     Active Substance: PROGESTERONE
     Indication: POISONING DELIBERATE
     Dosage: 10 DOSAGE FORM, SINGLE
     Route: 048
     Dates: start: 20200219, end: 20200219
  3. MIRTAZAPINE. [Suspect]
     Active Substance: MIRTAZAPINE
     Indication: POISONING DELIBERATE
     Dosage: 285 MILLIGRAM, SINGLE
     Route: 048
     Dates: start: 20200219, end: 20200219
  4. CLOMIPRAMINE [Suspect]
     Active Substance: CLOMIPRAMINE
     Indication: POISONING DELIBERATE
     Dosage: 250 MILLIGRAM, SINGLE
     Route: 048
     Dates: start: 20200219, end: 20200219

REACTIONS (4)
  - Oxygen saturation decreased [Recovered/Resolved]
  - Coma [Recovered/Resolved]
  - Tachycardia [Recovered/Resolved]
  - Vomiting [Recovered/Resolved]

NARRATIVE: CASE EVENT DATE: 20200219
